FAERS Safety Report 13415098 (Version 1)
Quarter: 2017Q2

REPORT INFORMATION
  Report Type: Spontaneous
  Country: US (occurrence: US)
  Receive Date: 20170406
  Receipt Date: 20170406
  Transmission Date: 20170830
  Serious: Yes (Other)
  Sender: FDA-Public Use
  Company Number: US-BAYER-2017-061179

PATIENT
  Age: 21 Year
  Sex: Female

DRUGS (1)
  1. MIRENA [Suspect]
     Active Substance: LEVONORGESTREL
     Indication: CONTRACEPTION
     Dosage: 20 MCG/24HR, CONT
     Route: 015
     Dates: start: 20170301

REACTIONS (4)
  - Genital discharge [Not Recovered/Not Resolved]
  - Menorrhagia [None]
  - Genital haemorrhage [Not Recovered/Not Resolved]
  - Abdominal pain lower [Not Recovered/Not Resolved]

NARRATIVE: CASE EVENT DATE: 2017
